FAERS Safety Report 21706766 (Version 10)
Quarter: 2023Q2

REPORT INFORMATION
  Report Type: Spontaneous
  Country: IN (occurrence: IN)
  Receive Date: 20221209
  Receipt Date: 20230622
  Transmission Date: 20230721
  Serious: Yes (Hospitalization, Other)
  Sender: FDA-Public Use
  Company Number: IN-PFIZER INC-PV202200118147

PATIENT
  Age: 67 Year
  Sex: Female
  Weight: 67.8 kg

DRUGS (11)
  1. LORLATINIB [Suspect]
     Active Substance: LORLATINIB
     Dosage: UNK
     Dates: start: 20221116
  2. LORLATINIB [Suspect]
     Active Substance: LORLATINIB
     Dosage: 100 MG, 1X/DAY
     Route: 048
  3. ALEX [CHLORPHENAMINE MALEATE;PHENYLEPHRINE HYDROCHLORIDE] [Concomitant]
     Dosage: 2 TSF TDS
  4. BUDESONIDE\FORMOTEROL FUMARATE [Concomitant]
     Active Substance: BUDESONIDE\FORMOTEROL FUMARATE
     Dosage: 1 ML, 2X/DAY
     Route: 045
  5. LEVERA [LEVETIRACETAM] [Concomitant]
     Dosage: 500 MG, 2X/DAY
  6. LUPITUSS [Concomitant]
  7. ZOLEDRONIC ACID [Concomitant]
     Active Substance: ZOLEDRONIC ACID
     Dosage: UNK
     Dates: start: 20221116
  8. ZOLEDRONIC ACID [Concomitant]
     Active Substance: ZOLEDRONIC ACID
     Dosage: UNK
     Dates: start: 20221216
  9. ZOLEDRONIC ACID [Concomitant]
     Active Substance: ZOLEDRONIC ACID
     Dosage: UNK
     Dates: start: 20230111
  10. ZOLEDRONIC ACID [Concomitant]
     Active Substance: ZOLEDRONIC ACID
     Dosage: UNK
     Dates: start: 20230213
  11. ZOLEDRONIC ACID [Concomitant]
     Active Substance: ZOLEDRONIC ACID
     Dosage: 4 MG
     Dates: start: 20230316

REACTIONS (16)
  - Blood pressure increased [Unknown]
  - Blood alkaline phosphatase increased [Unknown]
  - Electrocardiogram QT interval abnormal [Unknown]
  - Haemoptysis [Recovering/Resolving]
  - Blood cholesterol increased [Unknown]
  - Blood triglycerides increased [Unknown]
  - Oedema peripheral [Unknown]
  - Blood thyroid stimulating hormone increased [Unknown]
  - Weight increased [Recovering/Resolving]
  - Eastern Cooperative Oncology Group performance status worsened [Unknown]
  - Glycosylated haemoglobin increased [Unknown]
  - Haemoglobin decreased [Unknown]
  - Blood glucose increased [Unknown]
  - Neoplasm progression [Unknown]
  - Asthenia [Unknown]
  - Cough [Unknown]

NARRATIVE: CASE EVENT DATE: 20221108
